FAERS Safety Report 7001276-7 (Version None)
Quarter: 2010Q3

REPORT INFORMATION
  Report Type: 
  Country: None (occurrence: None)
  Receive Date: 20100920
  Receipt Date: 20100906
  Transmission Date: 20110219
  Serious: Yes (Hospitalization, Other)
  Sender: FDA-Public Use
  Company Number: FR-ROCHE-725459

PATIENT
  Age: 54 Year
  Sex: Male

DRUGS (15)
  1. MYCOPHENOLATE MOFETIL [Suspect]
     Route: 065
  2. MYCOPHENOLATE MOFETIL [Suspect]
     Dosage: DOSE REDUCTION.
     Route: 065
  3. VALACYCLOVIR [Suspect]
     Route: 065
  4. CYCLOSPORINE [Suspect]
     Dosage: DRUG WITHDRAWN.
     Route: 065
  5. CYCLOSPORINE [Suspect]
     Dosage: DRUG REINTRODUCED.
     Route: 065
  6. SIROLIMUS [Suspect]
     Dosage: DRUG WITHDRAWN.
     Route: 065
  7. PREDNISOLONE [Suspect]
     Route: 065
  8. PREDNISOLONE [Suspect]
     Dosage: RECEIVED STEROID PULSES.
     Route: 065
  9. OMEPRAZOLE [Concomitant]
  10. ALFUZOSINE [Concomitant]
  11. IRBESARTAN [Concomitant]
  12. HYDROCHLOROTHIAZIDE [Concomitant]
  13. SULFAMETHOXAZOLE AND TRIMETHOPRIM [Concomitant]
  14. ATENOLOL [Concomitant]
  15. EPOETIN BETA [Concomitant]

REACTIONS (7)
  - AGRANULOCYTOSIS [None]
  - CYTOMEGALOVIRUS INFECTION [None]
  - HEPATITIS [None]
  - PNEUMOCYSTIS JIROVECI PNEUMONIA [None]
  - RENAL IMPAIRMENT [None]
  - SQUAMOUS CELL CARCINOMA [None]
  - TRANSPLANT REJECTION [None]
